FAERS Safety Report 16876079 (Version 1)
Quarter: 2019Q4

REPORT INFORMATION
  Report Type: Spontaneous
  Country: US (occurrence: US)
  Receive Date: 20191002
  Receipt Date: 20191002
  Transmission Date: 20200122
  Serious: No
  Sender: FDA-Public Use
  Company Number: US-GW PHARMA-201908USGW2957

PATIENT

DRUGS (5)
  1. FYCOMPA [Concomitant]
     Active Substance: PERAMPANEL
     Indication: PRODUCT USED FOR UNKNOWN INDICATION
     Dosage: 2 MG, UNK
     Route: 065
  2. VIMPAT [Concomitant]
     Active Substance: LACOSAMIDE
     Indication: PRODUCT USED FOR UNKNOWN INDICATION
     Dosage: 50 MG, UNK
     Route: 065
  3. K-PHOS NEUTRAL [Concomitant]
     Active Substance: POTASSIUM PHOSPHATE\SODIUM PHOSPHATE
     Indication: PRODUCT USED FOR UNKNOWN INDICATION
     Dosage: UNK
     Route: 065
  4. EPIDIOLEX [Suspect]
     Active Substance: CANNABIDIOL
     Indication: MUSCLE SPASMS
     Dosage: 700 MILLIGRAM, BID (PRESCRIBED DOSE: 0.75 MG)
     Route: 048
     Dates: start: 20190601
  5. CALCIUM [Concomitant]
     Active Substance: CALCIUM
     Indication: PRODUCT USED FOR UNKNOWN INDICATION
     Dosage: 500 MG, UNK
     Route: 065

REACTIONS (5)
  - Fatigue [Recovering/Resolving]
  - Product use in unapproved indication [Not Recovered/Not Resolved]
  - Somnolence [Recovering/Resolving]
  - Diarrhoea [Recovering/Resolving]
  - Wrong dose [Not Recovered/Not Resolved]

NARRATIVE: CASE EVENT DATE: 20190601
